FAERS Safety Report 15833086 (Version 1)
Quarter: 2019Q1

REPORT INFORMATION
  Report Type: Spontaneous
  Country: US (occurrence: US)
  Receive Date: 20190116
  Receipt Date: 20190116
  Transmission Date: 20190417
  Serious: Yes (Other)
  Sender: FDA-Public Use
  Company Number: None

PATIENT
  Age: 42 Year
  Sex: Male
  Weight: 94.35 kg

DRUGS (1)
  1. GADOLINIUM USED FOR MRI [Suspect]
     Active Substance: GADOLINIUM

REACTIONS (3)
  - Fine motor skill dysfunction [None]
  - Myoclonus [None]
  - Hypoaesthesia [None]

NARRATIVE: CASE EVENT DATE: 20190115
